FAERS Safety Report 14301074 (Version 4)
Quarter: 2018Q1

REPORT INFORMATION
  Report Type: Report from Study
  Country: BR (occurrence: BR)
  Receive Date: 20171219
  Receipt Date: 20180115
  Transmission Date: 20180509
  Serious: Yes (Hospitalization, Other)
  Sender: FDA-Public Use
  Company Number: BR-JNJFOC-20171220658

PATIENT
  Sex: Male

DRUGS (3)
  1. SIMPONI [Suspect]
     Active Substance: GOLIMUMAB
     Indication: ANKYLOSING SPONDYLITIS
     Route: 058
     Dates: start: 20161126
  2. SIMPONI [Suspect]
     Active Substance: GOLIMUMAB
     Indication: ANKYLOSING SPONDYLITIS
     Route: 058
  3. SULFADIAZINE. [Concomitant]
     Active Substance: SULFADIAZINE
     Route: 065

REACTIONS (10)
  - Pyrexia [Unknown]
  - Weight decreased [Unknown]
  - Product availability issue [Unknown]
  - Pharyngitis [Unknown]
  - Inadequate diet [Unknown]
  - Varicose vein [Unknown]
  - Ankylosing spondylitis [Unknown]
  - Hospitalisation [Unknown]
  - Respiratory failure [Unknown]
  - Drug dose omission [Unknown]

NARRATIVE: CASE EVENT DATE: 2017
